FAERS Safety Report 19720468 (Version 3)
Quarter: 2022Q1

REPORT INFORMATION
  Report Type: Spontaneous
  Country: US (occurrence: US)
  Receive Date: 20210818
  Receipt Date: 20220309
  Transmission Date: 20220423
  Serious: Yes (Other)
  Sender: FDA-Public Use
  Company Number: US-GILEAD-2021-0544296

PATIENT
  Sex: Female
  Weight: 90.703 kg

DRUGS (11)
  1. TRUVADA [Suspect]
     Active Substance: EMTRICITABINE\TENOFOVIR DISOPROXIL FUMARATE
     Indication: HIV infection
     Dosage: UNK
     Route: 048
     Dates: start: 2011, end: 2015
  2. KALETRA [Concomitant]
     Active Substance: LOPINAVIR\RITONAVIR
  3. NORVIR [Concomitant]
     Active Substance: RITONAVIR
  4. PREZISTA [Concomitant]
     Active Substance: DARUNAVIR ETHANOLATE
  5. RETROVIR [Concomitant]
     Active Substance: ZIDOVUDINE
  6. TIVICAY [Concomitant]
     Active Substance: DOLUTEGRAVIR SODIUM
  7. CETIRIZINE [Concomitant]
     Active Substance: CETIRIZINE HYDROCHLORIDE
  8. CYMBALTA [Concomitant]
     Active Substance: DULOXETINE HYDROCHLORIDE
  9. LOSARTAN [Concomitant]
     Active Substance: LOSARTAN
  10. FLUNISOLIDE [Concomitant]
     Active Substance: FLUNISOLIDE
  11. LIDOCAINE [Concomitant]
     Active Substance: LIDOCAINE

REACTIONS (13)
  - Chronic kidney disease [Not Recovered/Not Resolved]
  - Renal pain [Not Recovered/Not Resolved]
  - Nephropathy [Unknown]
  - Pain [Not Recovered/Not Resolved]
  - Emotional distress [Not Recovered/Not Resolved]
  - Anxiety [Not Recovered/Not Resolved]
  - Anhedonia [Not Recovered/Not Resolved]
  - Back pain [Not Recovered/Not Resolved]
  - Blood urine present [Not Recovered/Not Resolved]
  - Pollakiuria [Not Recovered/Not Resolved]
  - Dysuria [Not Recovered/Not Resolved]
  - Insomnia [Not Recovered/Not Resolved]
  - Exercise tolerance decreased [Not Recovered/Not Resolved]

NARRATIVE: CASE EVENT DATE: 20150101
